FAERS Safety Report 7087198-4 (Version None)
Quarter: 2010Q4

REPORT INFORMATION
  Report Type: 
  Country: None (occurrence: None)
  Receive Date: 20101106
  Receipt Date: 20101102
  Transmission Date: 20110411
  Serious: No
  Sender: FDA-Public Use
  Company Number: US-WYE-H18527810

PATIENT
  Sex: Female
  Weight: 70.82 kg

DRUGS (4)
  1. PREMARIN [Suspect]
     Indication: VULVOVAGINAL DRYNESS
     Route: 067
     Dates: start: 20101029
  2. PREMARIN [Suspect]
     Indication: MENOPAUSE
  3. LASIX [Concomitant]
  4. PEPTO-BISMOL [Concomitant]

REACTIONS (1)
  - BREAST PAIN [None]
